FAERS Safety Report 17224837 (Version 1)
Quarter: 2020Q1

REPORT INFORMATION
  Report Type: Spontaneous
  Country: FR (occurrence: FR)
  Receive Date: 20200102
  Receipt Date: 20200102
  Transmission Date: 20200409
  Serious: Yes (Other)
  Sender: FDA-Public Use
  Company Number: FR-MYLANLABS-2019M1131992

PATIENT
  Age: 71 Year

DRUGS (1)
  1. GLIPIZIDE. [Suspect]
     Active Substance: GLIPIZIDE
     Indication: TYPE 2 DIABETES MELLITUS
     Dosage: 5 MG, DAILY (ONE TABLET)
     Route: 048

REACTIONS (2)
  - Hypoglycaemia [Unknown]
  - Hypoglycaemic coma [Recovered/Resolved]
